FAERS Safety Report 6477198-7 (Version None)
Quarter: 2009Q4

REPORT INFORMATION
  Report Type: 
  Country: None (occurrence: None)
  Receive Date: 20091207
  Receipt Date: 20091120
  Transmission Date: 20100525
  Serious: Yes (Hospitalization)
  Sender: FDA-Public Use
  Company Number: PHHY2009FR51020

PATIENT
  Sex: Female
  Weight: 95 kg

DRUGS (6)
  1. VALSARTAN AND HYDROCHLOROTHIAZIDE [Suspect]
     Indication: HYPERTENSION
     Dosage: UNK
     Dates: start: 20020101
  2. HEXAQUINE [Suspect]
     Indication: MUSCLE SPASMS
     Dosage: UNK
     Dates: start: 20060101, end: 20090811
  3. DI-ANTALVIC [Suspect]
     Indication: ARTHRALGIA
     Dosage: 2 DF, QW3
     Dates: start: 20060101
  4. ZYLORIC [Concomitant]
     Dosage: 100 MG, DAILY
     Dates: start: 19670101
  5. NOVONORM [Concomitant]
     Indication: DIABETES MELLITUS
     Dosage: UNK
     Dates: start: 20030101, end: 20090501
  6. AMAREL [Concomitant]
     Indication: DIABETES MELLITUS
     Dosage: UNK
     Dates: start: 20090523

REACTIONS (8)
  - ALANINE AMINOTRANSFERASE INCREASED [None]
  - ASPARTATE AMINOTRANSFERASE INCREASED [None]
  - BLOOD ALKALINE PHOSPHATASE INCREASED [None]
  - BLOOD BILIRUBIN INCREASED [None]
  - GAMMA-GLUTAMYLTRANSFERASE INCREASED [None]
  - HEPATIC STEATOSIS [None]
  - SPLENOMEGALY [None]
  - THROMBOCYTOPENIA [None]
